FAERS Safety Report 24001545 (Version 1)
Quarter: 2024Q2

REPORT INFORMATION
  Report Type: Spontaneous
  Country: US (occurrence: US)
  Receive Date: 20240621
  Receipt Date: 20240621
  Transmission Date: 20240715
  Serious: Yes (Other)
  Sender: FDA-Public Use
  Company Number: US-PFIZER INC-PV202400080460

PATIENT
  Age: 69 Year
  Sex: Female

DRUGS (6)
  1. ZOLEDRONIC ACID [Suspect]
     Active Substance: ZOLEDRONIC ACID
     Indication: Metastases to bone
     Dosage: UNK, CYCLIC
     Dates: start: 20020501
  2. DOXYCYCLINE [Concomitant]
     Active Substance: DOXYCYCLINE\DOXYCYCLINE HYCLATE
     Dosage: 100 MG
     Dates: start: 2002
  3. VALDECOXIB [Concomitant]
     Active Substance: VALDECOXIB
     Dosage: 20 MG
     Dates: start: 2002
  4. PROPOXYPHENE [Concomitant]
     Active Substance: PROPOXYPHENE
     Dosage: UNK
     Dates: start: 2002
  5. ACETAMINOPHEN [Concomitant]
     Active Substance: ACETAMINOPHEN
     Dosage: UNK
     Dates: start: 2002
  6. ALPRAZOLAM [Concomitant]
     Active Substance: ALPRAZOLAM
     Dosage: 0.5 MG
     Dates: start: 2002

REACTIONS (2)
  - Osteonecrosis of jaw [Recovering/Resolving]
  - Impaired healing [Recovering/Resolving]
